FAERS Safety Report 5611688-1 (Version None)
Quarter: 2008Q1

REPORT INFORMATION
  Report Type: 
  Country: None (occurrence: None)
  Receive Date: 20080201
  Receipt Date: 20071113
  Transmission Date: 20080703
  Serious: Yes (Other)
  Sender: FDA-Public Use
  Company Number: US-AMGEN-US262958

PATIENT
  Sex: Female

DRUGS (3)
  1. ENBREL [Suspect]
     Route: 064
     Dates: start: 20040801, end: 20060901
  2. METHOTREXATE [Concomitant]
     Route: 064
  3. PLAQUENIL [Concomitant]
     Route: 064

REACTIONS (3)
  - GASTROOESOPHAGEAL REFLUX DISEASE [None]
  - LUNG DISORDER [None]
  - RESPIRATORY SYNCYTIAL VIRUS INFECTION [None]
